FAERS Safety Report 10673555 (Version 1)
Quarter: 2014Q4

REPORT INFORMATION
  Report Type: Spontaneous
  Country: SA (occurrence: None)
  Receive Date: 20141222
  Receipt Date: 20141222
  Transmission Date: 20150529
  Serious: Yes (Other)
  Sender: FDA-Public Use
  Company Number: None

PATIENT
  Age: 74 Year
  Sex: Female
  Weight: 50 kg

DRUGS (8)
  1. LACTLUSE [Concomitant]
  2. ANIDALUFUNGIN [Concomitant]
  3. ANIDULAFUNGIN [Suspect]
     Active Substance: ANIDULAFUNGIN
     Indication: CANDIDA INFECTION
     Dosage: 100 MG OD/16 DAYS
     Route: 042
     Dates: start: 20141102, end: 20141118
  4. LANTUS [Concomitant]
     Active Substance: INSULIN GLARGINE
  5. ENOXAPARIN [Concomitant]
     Active Substance: ENOXAPARIN
  6. INSULIN ASPART [Concomitant]
     Active Substance: INSULIN ASPART
  7. OMEPRAZOL [Concomitant]
     Active Substance: OMEPRAZOLE
  8. PARACETAMOL [Concomitant]
     Active Substance: ACETAMINOPHEN

REACTIONS (2)
  - Portal vein thrombosis [None]
  - Splenic vein thrombosis [None]

NARRATIVE: CASE EVENT DATE: 20141118
